FAERS Safety Report 14255735 (Version 1)
Quarter: 2017Q4

REPORT INFORMATION
  Report Type: Spontaneous
  Country: CA (occurrence: CA)
  Receive Date: 20171206
  Receipt Date: 20171206
  Transmission Date: 20180321
  Serious: Yes (Other)
  Sender: FDA-Public Use
  Company Number: CA-BEH-2017085738

PATIENT

DRUGS (2)
  1. PRIVIGEN [Suspect]
     Active Substance: HUMAN IMMUNOGLOBULIN G
     Indication: PRODUCT USED FOR UNKNOWN INDICATION
     Dosage: 86 ML, TOT
     Route: 042
  2. ALBUMIN [Concomitant]
     Active Substance: ALBUMIN HUMAN
     Route: 065

REACTIONS (1)
  - Oxygen saturation decreased [Unknown]
